FAERS Safety Report 17153228 (Version 2)
Quarter: 2020Q3

REPORT INFORMATION
  Report Type: Spontaneous
  Country: US (occurrence: US)
  Receive Date: 20191213
  Receipt Date: 20200714
  Transmission Date: 20201102
  Serious: No
  Sender: FDA-Public Use
  Company Number: US-009507513-1912USA002300

PATIENT
  Sex: Female

DRUGS (1)
  1. GANIRELIX ACETATE INJECTION [Suspect]
     Active Substance: GANIRELIX ACETATE
     Indication: INFERTILITY FEMALE
     Dosage: 250 MICROGRAM DAILY FOR 4 DAYS (STRENGTH: 250 MICROGRAM (MCG)/0.5 (UNITS NOT REPORTED))
     Route: 058
     Dates: start: 20190925

REACTIONS (1)
  - Maternal exposure during pregnancy [Not Recovered/Not Resolved]
